FAERS Safety Report 8022329-0 (Version None)
Quarter: 2012Q1

REPORT INFORMATION
  Report Type: 
  Country: None (occurrence: None)
  Receive Date: 20120104
  Receipt Date: 20111227
  Transmission Date: 20120608
  Serious: Yes (Other)
  Sender: FDA-Public Use
  Company Number: US-BAYER-2011-080738

PATIENT
  Age: 18 Year
  Sex: Female
  Weight: 72.562 kg

DRUGS (6)
  1. NSAID'S [Concomitant]
     Dosage: UNK UNK, PRN
     Route: 048
  2. XIFAXAN [Concomitant]
     Dosage: 200 MG, BID
     Route: 048
     Dates: start: 20090529
  3. SEASONALE [Concomitant]
     Route: 048
  4. TRI-SPRINTEC [Concomitant]
     Route: 048
  5. YAZ [Suspect]
     Indication: PREMENSTRUAL SYNDROME
     Dosage: UNK
     Dates: start: 20060101, end: 20090501
  6. ZEGERID [Concomitant]
     Dosage: UNK
     Route: 048
     Dates: start: 20090529

REACTIONS (8)
  - BILIARY DYSKINESIA [None]
  - GALLBLADDER DISORDER [None]
  - PAIN [None]
  - INJURY [None]
  - EMOTIONAL DISTRESS [None]
  - ANXIETY [None]
  - GASTROINTESTINAL DISORDER [None]
  - ABDOMINAL PAIN [None]
